FAERS Safety Report 7443867-5 (Version None)
Quarter: 2011Q2

REPORT INFORMATION
  Report Type: 
  Country: None (occurrence: None)
  Receive Date: 20110428
  Receipt Date: 20080514
  Transmission Date: 20111010
  Serious: Yes (Death, Other)
  Sender: FDA-Public Use
  Company Number: US-BAYER-200822928NA

PATIENT
  Age: 58 Year
  Sex: Male
  Weight: 134.24 kg

DRUGS (12)
  1. MIDAZOLAM [Concomitant]
     Dosage: 15 MG, UNK
     Dates: start: 20061010
  2. VYTORIN [Concomitant]
     Dosage: 10/40 UNK
     Route: 048
  3. GLIMEPIRIDE [Concomitant]
     Dosage: 4 MG, UNK
     Route: 048
  4. HYDROCHLOROTHIAZIDE [Concomitant]
     Dosage: 25 MG, UNK
     Route: 048
  5. TRASYLOL [Suspect]
     Indication: CORONARY ARTERY BYPASS
     Route: 042
     Dates: start: 20061010
  6. LOTREL [Concomitant]
     Dosage: 10/20
     Route: 048
  7. TRASYLOL [Suspect]
     Indication: CORONARY REVASCULARISATION
  8. ACETYLSALICYLIC ACID SRT [Concomitant]
     Dosage: 325 MG, UNK
     Route: 048
  9. METFORMIN [Concomitant]
     Dosage: 1000 MG, UNK
     Route: 048
  10. INSULIN HUMAN [Concomitant]
     Dosage: UNK
     Dates: start: 20061010
  11. AMIODARONE [Concomitant]
     Dosage: UNK
     Dates: start: 20061010
  12. FENTANYL [Concomitant]
     Dosage: 20 ML, UNK
     Route: 042
     Dates: start: 20061010

REACTIONS (4)
  - DEATH [None]
  - ADVERSE EVENT [None]
  - UNEVALUABLE EVENT [None]
  - RENAL FAILURE [None]
